FAERS Safety Report 9574464 (Version 1)
Quarter: 2013Q4

REPORT INFORMATION
  Report Type: Spontaneous
  Country: DE (occurrence: DE)
  Receive Date: 20131001
  Receipt Date: 20131001
  Transmission Date: 20140711
  Serious: Yes (Hospitalization)
  Sender: FDA-Public Use
  Company Number: DE-BAYER-2013-118424

PATIENT
  Age: 49 Year
  Sex: Female
  Weight: 70 kg

DRUGS (3)
  1. ULTRAVIST [Suspect]
     Indication: RENAL DISORDER
     Dosage: 80 ML, ONCE
     Route: 042
  2. ULTRAVIST [Suspect]
     Indication: HAEMANGIOMA OF LIVER
  3. ULTRAVIST [Suspect]
     Indication: HYPERTENSION

REACTIONS (6)
  - Nausea [None]
  - Nausea [None]
  - Oropharyngeal discomfort [None]
  - Tachycardia [None]
  - Tremor [None]
  - Hypertension [None]
